FAERS Safety Report 7413792-4 (Version None)
Quarter: 2011Q2

REPORT INFORMATION
  Report Type: 
  Country: None (occurrence: None)
  Receive Date: 20110413
  Receipt Date: 20110408
  Transmission Date: 20111010
  Serious: Yes (Death)
  Sender: FDA-Public Use
  Company Number: RS-MERCK-1104USA01032

PATIENT
  Age: 55 Year
  Sex: Male

DRUGS (6)
  1. HEPARIN [Suspect]
     Route: 065
  2. SUFENTANIL [Concomitant]
     Route: 065
  3. CEFUROXIME [Concomitant]
     Route: 065
  4. ZOCOR [Suspect]
     Route: 048
  5. ETOMIDATE [Concomitant]
     Route: 065
  6. SEVOFLURANE [Suspect]
     Indication: GENERAL ANAESTHESIA
     Route: 065

REACTIONS (1)
  - HEPATIC NECROSIS [None]
